FAERS Safety Report 10344508 (Version 2)
Quarter: 2014Q3

REPORT INFORMATION
  Report Type: Report from Study
  Country: FI (occurrence: FI)
  Receive Date: 20140728
  Receipt Date: 20140806
  Transmission Date: 20150326
  Serious: Yes (Hospitalization)
  Sender: FDA-Public Use
  Company Number: PHHY2014FI091175

PATIENT
  Age: 31 Year
  Sex: Female

DRUGS (1)
  1. GILENYA [Suspect]
     Active Substance: FINGOLIMOD HYDROCHLORIDE
     Indication: MULTIPLE SCLEROSIS
     Dosage: 0.5 MG, QD
     Route: 048
     Dates: start: 20140704

REACTIONS (4)
  - Electrocardiogram QT prolonged [Unknown]
  - Electrocardiogram abnormal [Recovered/Resolved]
  - Arrhythmia [Recovered/Resolved]
  - Palpitations [Unknown]

NARRATIVE: CASE EVENT DATE: 20140704
